FAERS Safety Report 4301857-5 (Version None)
Quarter: 2004Q1

REPORT INFORMATION
  Report Type: 
  Country: None (occurrence: None)
  Receive Date: 20040223
  Receipt Date: 20040209
  Transmission Date: 20041129
  Serious: Yes (Disabling, Other)
  Sender: FDA-Public Use
  Company Number: GB-GLAXOSMITHKLINE-B0322707A

PATIENT
  Age: 53 Year
  Sex: Female

DRUGS (4)
  1. ZYBAN [Suspect]
     Indication: EX-SMOKER
     Dosage: 150MG PER DAY
     Route: 048
     Dates: start: 20031007, end: 20031027
  2. SEREVENT [Concomitant]
     Route: 065
     Dates: start: 20031013
  3. SALBUTAMOL [Concomitant]
     Route: 065
  4. BECOTIDE [Concomitant]
     Route: 065

REACTIONS (3)
  - PSORIASIS [None]
  - RASH [None]
  - TOXIC SKIN ERUPTION [None]
